FAERS Safety Report 10524029 (Version 1)
Quarter: 2014Q4

REPORT INFORMATION
  Report Type: Spontaneous
  Country: US (occurrence: None)
  Receive Date: 20141015
  Receipt Date: 20141015
  Transmission Date: 20150528
  Serious: Yes (Other)
  Sender: FDA-Public Use
  Company Number: None

PATIENT
  Age: 19 Year
  Sex: Male
  Weight: 136.08 kg

DRUGS (8)
  1. METFORMIN [Concomitant]
     Active Substance: METFORMIN HYDROCHLORIDE
  2. GUANFACINE. [Concomitant]
     Active Substance: GUANFACINE
  3. BUSPIRONE [Concomitant]
     Active Substance: BUSPIRONE HYDROCHLORIDE
  4. INSULIN [Concomitant]
     Active Substance: INSULIN NOS
  5. HALDOL [Concomitant]
     Active Substance: HALOPERIDOL
  6. LORAZEPAM. [Concomitant]
     Active Substance: LORAZEPAM
  7. DIVALPROEX [Concomitant]
     Active Substance: DIVALPROEX SODIUM
  8. PALIPERIDONE [Suspect]
     Active Substance: PALIPERIDONE
     Indication: AFFECTIVE DISORDER
     Dosage: EVERY NIGHT
     Route: 048
     Dates: start: 20140603

REACTIONS (1)
  - Dystonia [None]

NARRATIVE: CASE EVENT DATE: 20140605
